FAERS Safety Report 17595969 (Version 7)
Quarter: 2021Q2

REPORT INFORMATION
  Report Type: Report from Study
  Country: None (occurrence: IL)
  Receive Date: 20200329
  Receipt Date: 20210622
  Transmission Date: 20210716
  Serious: Yes (Hospitalization)
  Sender: FDA-Public Use
  Company Number: IL-ABBVIE-20K-082-3216307-00

PATIENT
  Age: 75 Year
  Sex: Male
  Weight: 59 kg

DRUGS (43)
  1. VENETOCLAX. [Suspect]
     Active Substance: VENETOCLAX
     Route: 048
     Dates: start: 20201012, end: 20201018
  2. AZACITIDINE. [Suspect]
     Active Substance: AZACITIDINE
     Dosage: CYCLE 10
     Route: 058
     Dates: start: 20201018, end: 20201018
  3. CASODEX [Concomitant]
     Active Substance: BICALUTAMIDE
     Indication: PROSTATE CANCER
     Dates: start: 20191213
  4. AMLOW [Concomitant]
     Active Substance: AMLODIPINE MALEATE
     Indication: HYPERTENSION
     Dates: start: 20191220
  5. VENETOCLAX. [Suspect]
     Active Substance: VENETOCLAX
     Route: 048
     Dates: start: 20200101, end: 20200129
  6. VENETOCLAX. [Suspect]
     Active Substance: VENETOCLAX
     Route: 048
     Dates: start: 20201221
  7. AZACITIDINE. [Suspect]
     Active Substance: AZACITIDINE
     Indication: ACUTE MYELOID LEUKAEMIA
     Dosage: CYCLE 1
     Route: 058
     Dates: start: 20191125, end: 20191128
  8. AZACITIDINE. [Suspect]
     Active Substance: AZACITIDINE
     Dosage: CYCLE 2
     Route: 058
     Dates: start: 20200101, end: 20200108
  9. ENALAPRIL [Concomitant]
     Active Substance: ENALAPRIL
     Indication: HYPERTENSION
  10. CIPROXIN [Concomitant]
     Active Substance: CIPROFLOXACIN
     Indication: PROPHYLAXIS
     Dates: start: 20191125
  11. ALLORIL [Concomitant]
     Active Substance: ALLOPURINOL
     Indication: PROPHYLAXIS
     Dates: start: 20191118
  12. VENETOCLAX. [Suspect]
     Active Substance: VENETOCLAX
     Route: 048
     Dates: start: 20201206, end: 20201212
  13. AZACITIDINE. [Suspect]
     Active Substance: AZACITIDINE
     Route: 058
     Dates: start: 20200426, end: 20200430
  14. AZACITIDINE. [Suspect]
     Active Substance: AZACITIDINE
     Dosage: CYCLE 6
     Route: 058
     Dates: start: 20200614, end: 20200618
  15. AZACITIDINE. [Suspect]
     Active Substance: AZACITIDINE
     Dosage: CYCLE 9
     Route: 058
     Dates: start: 20200913, end: 20200917
  16. AZACITIDINE. [Suspect]
     Active Substance: AZACITIDINE
     Route: 058
     Dates: start: 20200405, end: 20200406
  17. AZACITIDINE. [Suspect]
     Active Substance: AZACITIDINE
     Dosage: CYCLE 12
     Route: 058
     Dates: start: 20201206, end: 20201210
  18. VENETOCLAX. [Suspect]
     Active Substance: VENETOCLAX
     Route: 048
     Dates: start: 20200426, end: 20200509
  19. VENETOCLAX. [Suspect]
     Active Substance: VENETOCLAX
     Route: 048
     Dates: start: 20201108, end: 20201114
  20. AZACITIDINE. [Suspect]
     Active Substance: AZACITIDINE
     Dosage: CYCLE 1
     Route: 058
     Dates: start: 20191201, end: 20191203
  21. AZACITIDINE. [Suspect]
     Active Substance: AZACITIDINE
     Dosage: CYCLE 5
     Route: 058
     Dates: start: 20200503, end: 20200505
  22. AZACITIDINE. [Suspect]
     Active Substance: AZACITIDINE
     Dosage: CYCLE 7
     Route: 058
     Dates: start: 20200712, end: 20200716
  23. AZACITIDINE. [Suspect]
     Active Substance: AZACITIDINE
     Dosage: CYCLE 11
     Route: 058
     Dates: start: 20201108, end: 20201112
  24. CADEX [Concomitant]
     Indication: HYPERTENSION
  25. TAZOCIN [Concomitant]
     Active Substance: PIPERACILLIN SODIUM\TAZOBACTAM SODIUM
     Indication: NEUTROPENIA
     Dates: start: 20191213, end: 20191224
  26. VENETOCLAX. [Suspect]
     Active Substance: VENETOCLAX
     Dosage: THIS DOSE WAS INTERRUPTED
     Route: 048
     Dates: start: 20191126, end: 20191217
  27. VENETOCLAX. [Suspect]
     Active Substance: VENETOCLAX
     Route: 048
     Dates: start: 20200329, end: 20200411
  28. VENETOCLAX. [Suspect]
     Active Substance: VENETOCLAX
     Route: 048
     Dates: start: 20200809, end: 20200818
  29. AZACITIDINE. [Suspect]
     Active Substance: AZACITIDINE
     Dosage: CYCLE 8
     Route: 058
     Dates: start: 20200809, end: 20200813
  30. ZOLADEX [Concomitant]
     Active Substance: GOSERELIN ACETATE
     Indication: PROSTATE CANCER
  31. NEUPOGEN [Concomitant]
     Active Substance: FILGRASTIM
     Indication: NEUTROPENIA
     Dates: start: 20191216
  32. VENETOCLAX. [Suspect]
     Active Substance: VENETOCLAX
     Route: 048
     Dates: start: 20200219, end: 20200311
  33. VENETOCLAX. [Suspect]
     Active Substance: VENETOCLAX
     Route: 048
     Dates: start: 20200712, end: 20200721
  34. VENETOCLAX. [Suspect]
     Active Substance: VENETOCLAX
     Route: 048
     Dates: start: 20200913, end: 20200919
  35. AZACITIDINE. [Suspect]
     Active Substance: AZACITIDINE
     Route: 058
     Dates: start: 20200219, end: 20200226
  36. AZACITIDINE. [Suspect]
     Active Substance: AZACITIDINE
     Route: 058
     Dates: start: 20200329, end: 20200402
  37. VENETOCLAX. [Suspect]
     Active Substance: VENETOCLAX
     Indication: ACUTE MYELOID LEUKAEMIA
     Dosage: RAMP UP
     Route: 048
     Dates: start: 20191125, end: 20191125
  38. VENETOCLAX. [Suspect]
     Active Substance: VENETOCLAX
     Dosage: THIS DOSE WAS INTERRUPTED
     Route: 048
     Dates: start: 20191225
  39. VENETOCLAX. [Suspect]
     Active Substance: VENETOCLAX
     Route: 048
     Dates: start: 20200614, end: 20200704
  40. AZACITIDINE. [Suspect]
     Active Substance: AZACITIDINE
     Dosage: CYCLE 10
     Route: 058
     Dates: start: 20201012, end: 20201015
  41. BONDORMIN [Concomitant]
     Active Substance: BROTIZOLAM
     Indication: INSOMNIA
  42. DIFLUCAN [Concomitant]
     Active Substance: FLUCONAZOLE
     Indication: INFECTION PROPHYLAXIS
     Dates: start: 20200115, end: 2020
  43. ZOFRAN [Concomitant]
     Active Substance: ONDANSETRON HYDROCHLORIDE
     Indication: PROPHYLAXIS OF NAUSEA AND VOMITING
     Dates: start: 20191118

REACTIONS (19)
  - Hypomagnesaemia [Recovered/Resolved]
  - Dental caries [Recovered/Resolved]
  - Limb injury [Unknown]
  - Burning sensation [Not Recovered/Not Resolved]
  - Fatigue [Recovered/Resolved]
  - Anaemia [Recovered/Resolved with Sequelae]
  - Phlebitis [Not Recovered/Not Resolved]
  - Neutrophil count decreased [Recovered/Resolved]
  - Eye irritation [Recovering/Resolving]
  - Pruritus [Recovering/Resolving]
  - Febrile neutropenia [Recovering/Resolving]
  - Chest pain [Recovered/Resolved]
  - Thrombocytopenia [Recovered/Resolved with Sequelae]
  - Neutrophil count decreased [Not Recovered/Not Resolved]
  - Hypotension [Recovered/Resolved]
  - Cough [Recovering/Resolving]
  - Pain [Recovered/Resolved]
  - Hypertension [Unknown]
  - Thrombocytopenia [Recovered/Resolved with Sequelae]

NARRATIVE: CASE EVENT DATE: 20191126
